FAERS Safety Report 9952911 (Version 2)
Quarter: 2014Q1

REPORT INFORMATION
  Report Type: Report from Study
  Country: US (occurrence: US)
  Receive Date: 20140304
  Receipt Date: 20140304
  Transmission Date: 20141002
  Serious: No
  Sender: FDA-Public Use
  Company Number: US-ABBVIE-13P-163-1050777-00

PATIENT
  Age: 67 Year
  Sex: Female
  Weight: 90.8 kg

DRUGS (9)
  1. HUMIRA [Suspect]
     Indication: PSORIASIS
     Route: 058
     Dates: start: 20130201, end: 20130201
  2. HUMIRA [Suspect]
     Indication: PSORIATIC ARTHROPATHY
     Route: 058
     Dates: start: 201301
  3. CELEBREX [Concomitant]
     Indication: ARTHRITIS
  4. NEXIUM [Concomitant]
     Indication: GASTROOESOPHAGEAL REFLUX DISEASE
  5. NEXIUM [Concomitant]
     Indication: GASTRIC DISORDER
  6. SANCTURA [Concomitant]
     Indication: URINARY INCONTINENCE
  7. VITAMIN B-12 [Concomitant]
     Indication: VITAMIN SUPPLEMENTATION
  8. VITAMIN C [Concomitant]
     Indication: VITAMIN SUPPLEMENTATION
  9. VITAMIN D3 [Concomitant]
     Indication: VITAMIN SUPPLEMENTATION

REACTIONS (7)
  - Injection site erythema [Recovered/Resolved]
  - Injection site pruritus [Recovered/Resolved]
  - Rash [Recovered/Resolved]
  - Rash pruritic [Recovered/Resolved]
  - Injection site erythema [Not Recovered/Not Resolved]
  - Injection site pain [Not Recovered/Not Resolved]
  - Injection site pruritus [Not Recovered/Not Resolved]
